FAERS Safety Report 10740745 (Version 2)
Quarter: 2015Q1

REPORT INFORMATION
  Report Type: Spontaneous
  Country: US (occurrence: US)
  Receive Date: 20150127
  Receipt Date: 20150217
  Transmission Date: 20150721
  Serious: No
  Sender: FDA-Public Use
  Company Number: US-ELI_LILLY_AND_COMPANY-US201412010228

PATIENT
  Age: 79 Year
  Sex: Female

DRUGS (4)
  1. ATENOLOL. [Concomitant]
     Active Substance: ATENOLOL
     Route: 065
  2. LOSARTAN [Concomitant]
     Active Substance: LOSARTAN
     Route: 065
  3. HUMALOG [Suspect]
     Active Substance: INSULIN LISPRO
     Indication: DIABETES MELLITUS
     Dosage: 7 U, PRN
     Route: 065
     Dates: start: 1994
  4. LANTUS [Concomitant]
     Active Substance: INSULIN GLARGINE
     Route: 065

REACTIONS (4)
  - Blood glucose decreased [Unknown]
  - VIIth nerve paralysis [Unknown]
  - Visual impairment [Unknown]
  - Blood glucose fluctuation [Unknown]

NARRATIVE: CASE EVENT DATE: 2006
